FAERS Safety Report 9847092 (Version 2)
Quarter: 2014Q3

REPORT INFORMATION
  Report Type: Spontaneous
  Country: US (occurrence: US)
  Receive Date: 20140127
  Receipt Date: 20140821
  Transmission Date: 20150326
  Serious: Yes (Hospitalization, Other)
  Sender: FDA-Public Use
  Company Number: US-009507513-1401USA011459

PATIENT
  Sex: Female

DRUGS (1)
  1. NUVARING [Suspect]
     Active Substance: ETHINYL ESTRADIOL\ETONOGESTREL
     Dosage: UNK
     Route: 067

REACTIONS (8)
  - Cardiac arrest [Recovered/Resolved]
  - Pulmonary embolism [Unknown]
  - Renal failure acute [Unknown]
  - Haemorrhage intracranial [Recovering/Resolving]
  - Anaemia [Unknown]
  - Respiratory failure [Recovering/Resolving]
  - Thrombocytopenia [Unknown]
  - Ischaemic hepatitis [Unknown]

NARRATIVE: CASE EVENT DATE: 20130117
